FAERS Safety Report 5421916-3 (Version None)
Quarter: 2007Q3

REPORT INFORMATION
  Report Type: 
  Country: None (occurrence: None)
  Receive Date: 20070820
  Receipt Date: 20070820
  Transmission Date: 20080115
  Serious: Yes (Life-Threatening, Hospitalization)
  Sender: FDA-Public Use
  Company Number: None

PATIENT
  Age: 65 Year
  Sex: Male
  Weight: 84.369 kg

DRUGS (2)
  1. LIPITOR [Suspect]
     Indication: CARDIAC DISORDER
     Dosage: 80 1 X DAY MOUTH
     Route: 048
     Dates: start: 19970101, end: 20070101
  2. ZOCOR [Suspect]
     Dosage: 90 2 X DAY MOUTH
     Route: 048
     Dates: start: 19930101, end: 19970101

REACTIONS (1)
  - BREAST CANCER MALE [None]
